FAERS Safety Report 24067787 (Version 2)
Quarter: 2024Q3

REPORT INFORMATION
  Report Type: Spontaneous
  Country: US (occurrence: US)
  Receive Date: 20240710
  Receipt Date: 20240926
  Transmission Date: 20241017
  Serious: Yes (Hospitalization, Other)
  Sender: HIKMA
  Company Number: US-HIKMA PHARMACEUTICALS USA INC.-US-H14001-24-06029

PATIENT
  Age: 13 Year
  Sex: Female
  Weight: 40.6 kg

DRUGS (10)
  1. MERCAPTOPURINE [Suspect]
     Active Substance: MERCAPTOPURINE
     Indication: Philadelphia positive acute lymphocytic leukaemia
     Dosage: 25 MILLIGRAM, QD, FOR 7 DAYS/WEEK (DAYS 1-84)
     Route: 048
     Dates: start: 20240514, end: 20240528
  2. METHOTREXATE [Suspect]
     Active Substance: METHOTREXATE
     Indication: Philadelphia positive acute lymphocytic leukaemia
     Dosage: 15 MILLIGRAM, QD
     Route: 037
     Dates: start: 20240514
  3. METHOTREXATE SODIUM [Suspect]
     Active Substance: METHOTREXATE SODIUM
     Indication: Philadelphia positive acute lymphocytic leukaemia
     Dosage: 12.5 MILLIGRAM, WEEKLY
     Route: 048
     Dates: start: 20240521
  4. METHOTREXATE SODIUM [Suspect]
     Active Substance: METHOTREXATE SODIUM
     Dosage: 50% DOSE REDUCTION
     Route: 048
     Dates: start: 20240528
  5. PREDNISONE [Suspect]
     Active Substance: PREDNISONE
     Indication: Philadelphia positive acute lymphocytic leukaemia
     Dosage: 25 MILLIGRAM, BID
     Route: 048
     Dates: start: 20240514
  6. RUXOLITINIB [Suspect]
     Active Substance: RUXOLITINIB
     Indication: Philadelphia positive acute lymphocytic leukaemia
     Dosage: 60 MILLIGRAM, BID
     Route: 048
     Dates: start: 20240514, end: 20240528
  7. VINCRISTINE [Suspect]
     Active Substance: VINCRISTINE
     Indication: Philadelphia positive acute lymphocytic leukaemia
     Dosage: 1.5 MILLIGRAM/SQ. METER, QD
     Route: 042
     Dates: start: 20240514
  8. TYLENOL [Concomitant]
     Active Substance: ACETAMINOPHEN
     Indication: Product used for unknown indication
     Dosage: UNKNOWN
     Route: 065
     Dates: start: 20230705
  9. URSODIOL [Concomitant]
     Active Substance: URSODIOL
     Indication: Product used for unknown indication
     Dosage: UNKNOWN
     Route: 065
     Dates: start: 20231016
  10. ZOFRAN [Concomitant]
     Active Substance: ONDANSETRON HYDROCHLORIDE
     Indication: Product used for unknown indication
     Dosage: UNKNOWN
     Route: 065
     Dates: start: 20221018

REACTIONS (15)
  - Febrile neutropenia [Recovered/Resolved]
  - Liver injury [Unknown]
  - Dizziness postural [Unknown]
  - Fatigue [Unknown]
  - Oropharyngeal pain [Unknown]
  - Rhinorrhoea [Unknown]
  - Tachycardia [Unknown]
  - Pallor [Unknown]
  - Pain [Unknown]
  - Oral disorder [Unknown]
  - Pyrexia [Unknown]
  - Parvovirus infection [Unknown]
  - Terminal insomnia [Unknown]
  - Candida infection [Unknown]
  - Fungal infection [None]

NARRATIVE: CASE EVENT DATE: 20240605
